FAERS Safety Report 9156907 (Version 1)
Quarter: 2013Q1

REPORT INFORMATION
  Report Type: Spontaneous
  Country: AU (occurrence: AU)
  Receive Date: 20130312
  Receipt Date: 20130312
  Transmission Date: 20140127
  Serious: Yes (Other)
  Sender: FDA-Public Use
  Company Number: PHHY2013AU023422

PATIENT
  Age: 76 Year
  Sex: Female

DRUGS (6)
  1. ACLASTA [Suspect]
     Dosage: UNK
     Route: 042
  2. CALTRATE [Concomitant]
     Dosage: UNK UKN, UNK
  3. OROXINE [Concomitant]
     Dosage: UNK UKN, UNK
  4. PARIET [Concomitant]
     Dosage: UNK UKN, UNK
  5. PLAVIX [Concomitant]
     Dosage: UNK UKN, UNK
  6. PRAVACHOL [Concomitant]
     Dosage: UNK UKN, UNK

REACTIONS (7)
  - Muscular weakness [Unknown]
  - Abasia [Unknown]
  - Asthenia [Unknown]
  - Decreased appetite [Unknown]
  - Nausea [Unknown]
  - Pain in extremity [Unknown]
  - Headache [Unknown]
